FAERS Safety Report 7457284-5 (Version None)
Quarter: 2011Q2

REPORT INFORMATION
  Report Type: 
  Country: None (occurrence: None)
  Receive Date: 20110504
  Receipt Date: 20110419
  Transmission Date: 20111010
  Serious: Yes (Life-Threatening, Hospitalization, Other)
  Sender: FDA-Public Use
  Company Number: US-JNJFOC-20110411293

PATIENT
  Age: 63 Year
  Sex: Female

DRUGS (3)
  1. NUCYNTA [Suspect]
     Indication: PRODUCT USED FOR UNKNOWN INDICATION
     Route: 065
  2. ACETAMINOPHEN [Concomitant]
     Indication: PRODUCT USED FOR UNKNOWN INDICATION
     Route: 065
  3. ASPIRIN [Concomitant]
     Route: 065

REACTIONS (11)
  - SUICIDE ATTEMPT [None]
  - CONFUSIONAL STATE [None]
  - RESPIRATORY RATE INCREASED [None]
  - MENTAL STATUS CHANGES [None]
  - INTERNATIONAL NORMALISED RATIO INCREASED [None]
  - INTENTIONAL OVERDOSE [None]
  - BASE EXCESS DECREASED [None]
  - BLOOD PH DECREASED [None]
  - BLOOD POTASSIUM DECREASED [None]
  - BREATH SOUNDS ABNORMAL [None]
  - HEART RATE INCREASED [None]
